FAERS Safety Report 9498913 (Version 1)
Quarter: 2013Q3

REPORT INFORMATION
  Report Type: Spontaneous
  Country: US (occurrence: US)
  Receive Date: 20130904
  Receipt Date: 20130904
  Transmission Date: 20140515
  Serious: Yes (Other)
  Sender: FDA-Public Use
  Company Number: CHPA2013US013569

PATIENT
  Age: 75 Year
  Sex: Male

DRUGS (5)
  1. ACETYLSALICYLIC ACID [Suspect]
     Indication: ANTICOAGULANT THERAPY
     Dosage: 81 MG, QD
     Route: 048
  2. ACETYLSALICYLIC ACID [Suspect]
     Dosage: 325 MG, QD
     Route: 048
  3. VOLTAREN GEL [Suspect]
     Indication: INFLAMMATION
     Dosage: UNK, UNK
     Route: 061
     Dates: start: 20130828
  4. ALEVE [Concomitant]
     Dosage: UNK, UNK
     Route: 065
  5. SLEEP AID [Concomitant]
     Indication: INSOMNIA
     Dosage: UNK, PRN
     Route: 065

REACTIONS (7)
  - Cystitis [Recovered/Resolved]
  - Inflammation [Not Recovered/Not Resolved]
  - Inguinal hernia [Recovered/Resolved]
  - Abdominal discomfort [Recovered/Resolved]
  - Incorrect drug administration duration [Unknown]
  - Off label use [Unknown]
  - Drug administered at inappropriate site [Unknown]
